FAERS Safety Report 8533674-4 (Version None)
Quarter: 2012Q3

REPORT INFORMATION
  Report Type: 
  Country: None (occurrence: None)
  Receive Date: 20120724
  Receipt Date: 20120719
  Transmission Date: 20120928
  Serious: No
  Sender: FDA-Public Use
  Company Number: US-PFIZER INC-2012175461

PATIENT
  Sex: Female

DRUGS (4)
  1. FLUOXETINE [Suspect]
     Dosage: 20 MG, 1X/DAY
     Route: 048
  2. VALIUM [Suspect]
     Dosage: 10 MG, 3X/DAY
     Route: 048
  3. SYNTHROID [Suspect]
     Dosage: 125 UG, 1X/DAY
     Route: 048
  4. NEURONTIN [Suspect]
     Dosage: 300 MG, 3X/DAY
     Route: 048

REACTIONS (2)
  - IMPAIRED WORK ABILITY [None]
  - BACK PAIN [None]
